FAERS Safety Report 23308744 (Version 1)
Quarter: 2023Q4

REPORT INFORMATION
  Report Type: Report from Study
  Country: CA (occurrence: CA)
  Receive Date: 20231218
  Receipt Date: 20231218
  Transmission Date: 20240110
  Serious: Yes (Death, Life-Threatening, Hospitalization, Disabling, Other)
  Sender: FDA-Public Use
  Company Number: CA-AstraZeneca-2023A218262

PATIENT
  Sex: Female
  Weight: 67 kg

DRUGS (1)
  1. ENHERTU [Suspect]
     Active Substance: FAM-TRASTUZUMAB DERUXTECAN-NXKI
     Indication: Breast cancer metastatic
     Dosage: 5.4 MG/KG, ONCE EVERY 3 WK
     Route: 042
     Dates: start: 20230720, end: 20230831

REACTIONS (6)
  - Pneumonitis [Fatal]
  - Metastases to lung [Unknown]
  - Malignant neoplasm progression [Unknown]
  - Dyspnoea [Unknown]
  - Pneumonia [Unknown]
  - Pulmonary fibrosis [Recovered/Resolved with Sequelae]

NARRATIVE: CASE EVENT DATE: 20230101
